FAERS Safety Report 17830392 (Version 3)
Quarter: 2020Q3

REPORT INFORMATION
  Report Type: Report from Study
  Country: US (occurrence: US)
  Receive Date: 20200527
  Receipt Date: 20200828
  Transmission Date: 20201102
  Serious: Yes (Other)
  Sender: FDA-Public Use
  Company Number: NVSC2020US139570

PATIENT
  Sex: Female

DRUGS (2)
  1. COSENTYX [Suspect]
     Active Substance: SECUKINUMAB
     Dosage: 150 MG, Q4W
     Route: 058
  2. COSENTYX [Suspect]
     Active Substance: SECUKINUMAB
     Indication: PSORIATIC ARTHROPATHY
     Dosage: 150 MG, Q4W
     Route: 058

REACTIONS (8)
  - Post procedural complication [Recovering/Resolving]
  - Scar [Recovering/Resolving]
  - Heart rate increased [Unknown]
  - Psoriatic arthropathy [Recovering/Resolving]
  - Fracture blisters [Recovering/Resolving]
  - Anaemia [Unknown]
  - Product dose omission issue [Unknown]
  - Autoimmune disorder [Recovering/Resolving]
